FAERS Safety Report 6775825-8 (Version None)
Quarter: 2010Q2

REPORT INFORMATION
  Report Type: 
  Country: None (occurrence: None)
  Receive Date: 20100615
  Receipt Date: 20100604
  Transmission Date: 20101027
  Serious: Yes (Hospitalization)
  Sender: FDA-Public Use
  Company Number: 013513

PATIENT
  Age: 14 Year
  Sex: Male

DRUGS (2)
  1. CERTOLIZUMAB PEGOL [Suspect]
     Indication: CROHN'S DISEASE
  2. PREDNISONE [Concomitant]

REACTIONS (9)
  - ABDOMINAL MASS [None]
  - ARTHROPATHY [None]
  - HYPOTENSION [None]
  - INTESTINAL DILATATION [None]
  - LIVER ABSCESS [None]
  - SMALL INTESTINAL OBSTRUCTION [None]
  - SMALL INTESTINAL STENOSIS [None]
  - STREPTOCOCCAL ABSCESS [None]
  - TACHYCARDIA [None]
